FAERS Safety Report 7001347-5 (Version None)
Quarter: 2010Q3

REPORT INFORMATION
  Report Type: 
  Country: None (occurrence: None)
  Receive Date: 20100920
  Receipt Date: 20100713
  Transmission Date: 20110219
  Serious: No
  Sender: FDA-Public Use
  Company Number: US-ASTRAZENECA-2010SE32659

PATIENT
  Sex: Female

DRUGS (4)
  1. SEROQUEL XR [Suspect]
     Indication: BIPOLAR I DISORDER
     Route: 048
     Dates: start: 20091001
  2. SEROQUEL XR [Suspect]
     Indication: MANIA
     Route: 048
     Dates: start: 20091001
  3. SEROQUEL XR [Suspect]
     Route: 048
     Dates: start: 20100708
  4. SEROQUEL XR [Suspect]
     Route: 048
     Dates: start: 20100708

REACTIONS (4)
  - INSOMNIA [None]
  - MANIA [None]
  - MUSCULOSKELETAL STIFFNESS [None]
  - PALPITATIONS [None]
